FAERS Safety Report 24893378 (Version 1)
Quarter: 2025Q1

REPORT INFORMATION
  Report Type: Spontaneous
  Country: JP (occurrence: JP)
  Receive Date: 20250128
  Receipt Date: 20250128
  Transmission Date: 20250409
  Serious: Yes (Death, Hospitalization, Other)
  Sender: ASTELLAS
  Company Number: JP-ASTELLAS-2023JP006173

PATIENT
  Age: 45 Year
  Sex: Male
  Weight: 65.7 kg

DRUGS (21)
  1. PROGRAF [Suspect]
     Active Substance: TACROLIMUS
     Indication: Immunosuppressant drug therapy
     Route: 065
  2. PROGRAF [Suspect]
     Active Substance: TACROLIMUS
     Route: 065
  3. SAMSCA [Concomitant]
     Active Substance: TOLVAPTAN
     Indication: Cirrhosis alcoholic
     Route: 065
  4. METHYLPREDNISOLONE [Concomitant]
     Active Substance: METHYLPREDNISOLONE
     Indication: Immunosuppressant drug therapy
     Route: 065
  5. METHYLPREDNISOLONE [Concomitant]
     Active Substance: METHYLPREDNISOLONE
     Route: 065
  6. METHYLPREDNISOLONE [Concomitant]
     Active Substance: METHYLPREDNISOLONE
     Route: 065
     Dates: start: 20221205
  7. METHYLPREDNISOLONE [Concomitant]
     Active Substance: METHYLPREDNISOLONE
     Route: 065
  8. METHYLPREDNISOLONE [Concomitant]
     Active Substance: METHYLPREDNISOLONE
     Route: 065
  9. METHYLPREDNISOLONE [Concomitant]
     Active Substance: METHYLPREDNISOLONE
     Route: 065
  10. METHYLPREDNISOLONE [Concomitant]
     Active Substance: METHYLPREDNISOLONE
     Route: 065
  11. EVEROLIMUS [Concomitant]
     Active Substance: EVEROLIMUS
     Indication: Immunosuppressant drug therapy
     Route: 065
  12. EVEROLIMUS [Concomitant]
     Active Substance: EVEROLIMUS
     Route: 065
     Dates: start: 20221020
  13. EVEROLIMUS [Concomitant]
     Active Substance: EVEROLIMUS
     Route: 065
  14. MYCOPHENOLATE MOFETIL [Concomitant]
     Active Substance: MYCOPHENOLATE MOFETIL
     Indication: Immunosuppressant drug therapy
     Route: 065
  15. MYCOPHENOLATE MOFETIL [Concomitant]
     Active Substance: MYCOPHENOLATE MOFETIL
     Route: 065
     Dates: end: 20221020
  16. MYCOPHENOLATE MOFETIL [Concomitant]
     Active Substance: MYCOPHENOLATE MOFETIL
     Route: 065
  17. MICAFUNGIN [Concomitant]
     Active Substance: MICAFUNGIN SODIUM
     Indication: Bronchopulmonary aspergillosis
     Route: 065
     Dates: start: 202208
  18. MICAFUNGIN [Concomitant]
     Active Substance: MICAFUNGIN SODIUM
     Route: 065
     Dates: start: 20220901
  19. AMPHOTERICIN B [Concomitant]
     Active Substance: AMPHOTERICIN B
     Indication: Bronchopulmonary aspergillosis
     Route: 065
     Dates: start: 202209, end: 202209
  20. VORICONAZOLE [Concomitant]
     Active Substance: VORICONAZOLE
     Indication: Fungal test positive
     Route: 065
     Dates: start: 202209
  21. VORICONAZOLE [Concomitant]
     Active Substance: VORICONAZOLE
     Indication: Blood beta-D-glucan increased

REACTIONS (21)
  - Haemophagocytic lymphohistiocytosis [Fatal]
  - Vanishing bile duct syndrome [Unknown]
  - Transplant dysfunction [Unknown]
  - Anuria [Unknown]
  - Bronchopulmonary aspergillosis [Unknown]
  - Pulmonary cavitation [Recovering/Resolving]
  - Melaena [Unknown]
  - Septic shock [Unknown]
  - Small intestinal haemorrhage [Unknown]
  - Haemophagocytic lymphohistiocytosis [Unknown]
  - Pneumocystis jirovecii pneumonia [Unknown]
  - Renal failure [Unknown]
  - Hyperbilirubinaemia [Unknown]
  - Liver transplant rejection [Unknown]
  - Oliguria [Unknown]
  - Acidosis [Unknown]
  - Carbon dioxide increased [Unknown]
  - Enterobacter test positive [Unknown]
  - Fungal test positive [Unknown]
  - Blood beta-D-glucan increased [Unknown]
  - Cytomegalovirus test positive [Unknown]

NARRATIVE: CASE EVENT DATE: 20220707
